FAERS Safety Report 15515809 (Version 1)
Quarter: 2018Q4

REPORT INFORMATION
  Report Type: Spontaneous
  Country: NL (occurrence: NL)
  Receive Date: 20181017
  Receipt Date: 20181017
  Transmission Date: 20190205
  Serious: Yes (Hospitalization)
  Sender: FDA-Public Use
  Company Number: NL-AUROBINDO-AUR-APL-2018-050434

PATIENT
  Age: 84 Year
  Sex: Male
  Weight: 70 kg

DRUGS (5)
  1. OFLOXACIN. [Concomitant]
     Active Substance: OFLOXACIN
     Indication: PRODUCT USED FOR UNKNOWN INDICATION
     Dosage: 3 GTT, EVERY 8 HR, 3DD3 DROPS IN THE EAR
     Route: 050
     Dates: start: 20180828
  2. BISOPROLOL [Concomitant]
     Active Substance: BISOPROLOL
     Indication: PRODUCT USED FOR UNKNOWN INDICATION
     Dosage: 2 MILLIGRAM, DAILY
     Route: 065
     Dates: start: 20170228
  3. CIPROFLOXACINE 750 MG FILM-COATED TABLET [Suspect]
     Active Substance: CIPROFLOXACIN
     Indication: MASTOIDITIS
     Dosage: 750 MILLIGRAM, EVERY 12 HOUR,  2 PIECES PER DAY
     Route: 050
     Dates: start: 20180907, end: 20180910
  4. PERINDOPRIL [Concomitant]
     Active Substance: PERINDOPRIL
     Indication: PRODUCT USED FOR UNKNOWN INDICATION
     Dosage: 2 MILLIGRAM, DAILY (1 DD 0.5)
     Route: 065
     Dates: start: 20180501
  5. ACETYLSALICYLIC ACID [Concomitant]
     Active Substance: ASPIRIN
     Indication: PRODUCT USED FOR UNKNOWN INDICATION
     Dosage: 80 MILLIGRAM, DAILY
     Route: 065
     Dates: start: 20170428

REACTIONS (1)
  - Tenosynovitis [Recovered/Resolved]

NARRATIVE: CASE EVENT DATE: 20180909
